FAERS Safety Report 6300365-X (Version None)
Quarter: 2009Q3

REPORT INFORMATION
  Report Type: 
  Country: None (occurrence: None)
  Receive Date: 20090806
  Receipt Date: 20081211
  Transmission Date: 20100115
  Serious: No
  Sender: FDA-Public Use
  Company Number: US-ABBOTT-08P-163-0469377-00

PATIENT
  Sex: Male
  Weight: 77.18 kg

DRUGS (3)
  1. DEPAKOTE ER [Suspect]
     Indication: BIPOLAR DISORDER
     Route: 048
     Dates: start: 20080801
  2. DEPAKOTE ER [Suspect]
     Indication: MOOD SWINGS
  3. PROZAC [Concomitant]
     Indication: OBSESSIVE-COMPULSIVE DISORDER
     Route: 048

REACTIONS (4)
  - ABDOMINAL PAIN [None]
  - DECREASED APPETITE [None]
  - DIARRHOEA [None]
  - SOMNOLENCE [None]
